FAERS Safety Report 12770796 (Version 1)
Quarter: 2016Q3

REPORT INFORMATION
  Report Type: Spontaneous
  Country: US (occurrence: US)
  Receive Date: 20160921
  Receipt Date: 20160921
  Transmission Date: 20161109
  Serious: Yes (Hospitalization)
  Sender: FDA-Public Use
  Company Number: None

PATIENT
  Age: 9 Year
  Sex: Male
  Weight: 33.3 kg

DRUGS (1)
  1. ERWINAZE [Suspect]
     Active Substance: ASPARAGINASE ERWINIA CHRYSANTHEMI
     Indication: ACUTE LYMPHOCYTIC LEUKAEMIA
     Dosage: OTHER STRENGTH:;OTHER DOSE:;OTHER FREQUENCY:PER CHEMO ROADMAP;OTHER ROUTE:
     Route: 030
     Dates: start: 20160822, end: 20160826

REACTIONS (4)
  - Hypotension [None]
  - Flushing [None]
  - Lip swelling [None]
  - Dizziness [None]

NARRATIVE: CASE EVENT DATE: 20160826
